FAERS Safety Report 8553715-8 (Version None)
Quarter: 2012Q3

REPORT INFORMATION
  Report Type: 
  Country: None (occurrence: None)
  Receive Date: 20120731
  Receipt Date: 20120725
  Transmission Date: 20120928
  Serious: Yes (Other)
  Sender: FDA-Public Use
  Company Number: US-PFIZER INC-2012180228

PATIENT
  Sex: Male
  Weight: 83.9 kg

DRUGS (5)
  1. BENICAR [Suspect]
     Indication: HYPERTENSION
     Dosage: 20 MG, DAILY
     Route: 048
  2. ZETIA [Suspect]
     Indication: CARDIAC OPERATION
     Dosage: 10 MG, DAILY
     Route: 048
  3. ALPRAZOLAM [Concomitant]
     Indication: DEPRESSION
     Dosage: 25 MG, 1X/DAY
  4. ATORVASTATIN CALCIUM [Suspect]
     Indication: CARDIAC OPERATION
     Dosage: 20 MG, DAILY
     Dates: start: 20120601
  5. ASPIRIN [Suspect]
     Indication: CARDIAC OPERATION
     Dosage: UNK,DAILY

REACTIONS (8)
  - ABDOMINAL PAIN UPPER [None]
  - DIARRHOEA [None]
  - BLOOD PRESSURE ABNORMAL [None]
  - DRUG INEFFECTIVE [None]
  - HYPERSENSITIVITY [None]
  - SOMNOLENCE [None]
  - DIZZINESS [None]
  - VOMITING [None]
